FAERS Safety Report 14826774 (Version 1)
Quarter: 2018Q2

REPORT INFORMATION
  Report Type: Spontaneous
  Country: DE (occurrence: DE)
  Receive Date: 20180430
  Receipt Date: 20180430
  Transmission Date: 20180711
  Serious: Yes (Hospitalization, Other)
  Sender: FDA-Public Use
  Company Number: DE-AUROBINDO-AUR-APL-2018-022589

PATIENT
  Age: 75 Year
  Sex: Female
  Weight: 69 kg

DRUGS (7)
  1. ACETYLSALICYLIC ACID 100MG [Suspect]
     Active Substance: ASPIRIN
     Indication: THROMBOSIS PROPHYLAXIS
     Dosage: 100 MG, UNK
     Route: 048
  2. ZYLORIC [Suspect]
     Active Substance: ALLOPURINOL
     Indication: HYPERURICAEMIA
     Dosage: ()
     Route: 048
     Dates: start: 19960704
  3. ESIDRIX [Suspect]
     Active Substance: HYDROCHLOROTHIAZIDE
     Indication: OEDEMA
     Dosage: ()
     Route: 048
     Dates: start: 19960704
  4. GLUCOBAY [Concomitant]
     Active Substance: ACARBOSE
     Indication: DIABETES MELLITUS
     Dosage: 1 DOSAGE FORM, ONCE A DAY
     Route: 065
  5. IBUPROFEN FILM-COATED TABLETS [Suspect]
     Active Substance: IBUPROFEN
     Indication: RHEUMATIC DISORDER
     Dosage: 1 DOSAGE FORM, ONCE A DAY
     Route: 048
  6. EUGLUCON N [Suspect]
     Active Substance: GLYBURIDE
     Indication: DIABETES MELLITUS
     Dosage: 31.5 MILLIGRAM, ONCE A DAY
     Route: 048
  7. NOVODIGAL                          /00017701/ [Concomitant]
     Indication: CARDIAC FAILURE
     Dosage: 1 DOSAGE FORM, ONCE A DAY
     Route: 065

REACTIONS (4)
  - Stevens-Johnson syndrome [Recovering/Resolving]
  - Rash [Recovering/Resolving]
  - Mucosal erosion [Recovering/Resolving]
  - Lymphopenia [Unknown]

NARRATIVE: CASE EVENT DATE: 19960727
